FAERS Safety Report 11329139 (Version 1)
Quarter: 2015Q3

REPORT INFORMATION
  Report Type: Report from Study
  Country: US (occurrence: US)
  Receive Date: 20150803
  Receipt Date: 20150803
  Transmission Date: 20151125
  Serious: Yes (Death, Hospitalization)
  Sender: FDA-Public Use
  Company Number: US-ROCHE-1552353

PATIENT
  Age: 78 Year
  Sex: Female
  Weight: 53.7 kg

DRUGS (6)
  1. BEVACIZUMAB [Suspect]
     Active Substance: BEVACIZUMAB
     Indication: OVARIAN EPITHELIAL CANCER
     Dosage: LAST DOSE PRIOR TO EVENT ON 11/FEB/2015
     Route: 042
     Dates: start: 20141203, end: 20141203
  2. PACLITAXEL. [Suspect]
     Active Substance: PACLITAXEL
     Indication: OVARIAN EPITHELIAL CANCER
     Dosage: LAST DOSE PRIOR TO EVENT ON 11/FEB/2015.
     Route: 042
     Dates: start: 20141112, end: 20150211
  3. CARBOPLATIN. [Suspect]
     Active Substance: CARBOPLATIN
     Indication: OVARIAN EPITHELIAL CANCER
     Dosage: AUC = 6, LAST DOSE PRIOR TO EVENT ON 11/FEB/2015.
     Route: 042
     Dates: start: 20141112, end: 20150211
  4. BEVACIZUMAB [Suspect]
     Active Substance: BEVACIZUMAB
     Dosage: LAST DOSE PRIOR TO EVENT ON 01/APR/2015 TOTAL DOSE: 809 MG
     Route: 042
     Dates: start: 20150401, end: 20150401
  5. BEVACIZUMAB [Suspect]
     Active Substance: BEVACIZUMAB
     Route: 042
     Dates: end: 20150506
  6. VELIPARIB [Suspect]
     Active Substance: VELIPARIB
     Indication: OVARIAN EPITHELIAL CANCER
     Dosage: LAST DOSE PRIOR TO EVENT ON 16/FEB/2015.
     Route: 048
     Dates: start: 20150209, end: 20150216

REACTIONS (3)
  - Dehydration [Unknown]
  - Sudden death [Fatal]
  - Syncope [Unknown]

NARRATIVE: CASE EVENT DATE: 20150217
